FAERS Safety Report 25736027 (Version 2)
Quarter: 2025Q3

REPORT INFORMATION
  Report Type: Spontaneous
  Country: US (occurrence: US)
  Receive Date: 20250828
  Receipt Date: 20250829
  Transmission Date: 20251020
  Serious: No
  Sender: THERATECHNOLOGIES
  Company Number: US-THERATECHNOLOGIES INC.-2025-THE-IBA-000060

PATIENT

DRUGS (4)
  1. TROGARZO [Suspect]
     Active Substance: IBALIZUMAB-UIYK
     Indication: HIV infection
     Route: 042
     Dates: start: 20230322, end: 20230322
  2. TROGARZO [Suspect]
     Active Substance: IBALIZUMAB-UIYK
     Route: 042
     Dates: end: 20240220
  3. LENACAPAVIR [Concomitant]
     Active Substance: LENACAPAVIR
     Indication: HIV infection
     Dosage: 600 MG, QD
     Route: 048
     Dates: start: 20230323, end: 20230323
  4. LENACAPAVIR [Concomitant]
     Active Substance: LENACAPAVIR
     Route: 058

REACTIONS (1)
  - Coagulopathy [Unknown]
